FAERS Safety Report 13878109 (Version 1)
Quarter: 2017Q3

REPORT INFORMATION
  Report Type: Spontaneous
  Country: DK (occurrence: DK)
  Receive Date: 20170817
  Receipt Date: 20170817
  Transmission Date: 20171127
  Serious: Yes (Other)
  Sender: FDA-Public Use
  Company Number: DK-MYLANLABS-2017M1050145

PATIENT

DRUGS (2)
  1. AMIODARONE [Suspect]
     Active Substance: AMIODARONE
     Dosage: 150 MG
  2. AMIODARONE [Suspect]
     Active Substance: AMIODARONE
     Indication: CARDIAC ARREST
     Dosage: 300 MG; FOLLOWED BY 150 MG

REACTIONS (5)
  - Oedema peripheral [Not Recovered/Not Resolved]
  - Blister [Unknown]
  - Incorrect route of drug administration [Not Recovered/Not Resolved]
  - Skin necrosis [Not Recovered/Not Resolved]
  - Onychomadesis [Unknown]
